FAERS Safety Report 8536452 (Version 4)
Quarter: 2013Q2

REPORT INFORMATION
  Report Type: Spontaneous
  Country: JP (occurrence: JP)
  Receive Date: 20120430
  Receipt Date: 20130529
  Transmission Date: 20140414
  Serious: Yes (Hospitalization)
  Sender: FDA-Public Use
  Company Number: JP-GLAXOSMITHKLINE-B0798926A

PATIENT
  Age: 71 Year
  Sex: Female

DRUGS (9)
  1. HYCAMTIN [Suspect]
     Indication: OVARIAN CANCER
     Route: 042
     Dates: start: 20120416, end: 20120518
  2. EPADEL [Concomitant]
     Route: 048
  3. OPALMON [Concomitant]
     Route: 048
  4. DEXAMETHASONE SODIUM PHOSPHATE [Concomitant]
     Indication: PROPHYLAXIS OF NAUSEA AND VOMITING
     Route: 042
     Dates: start: 20120416, end: 20120420
  5. LENDORMIN [Concomitant]
     Route: 048
  6. LAXOBERON [Concomitant]
     Route: 048
  7. NAUZELIN [Concomitant]
     Dosage: 1TAB PER DAY
     Route: 048
  8. TRAMAL [Concomitant]
     Dosage: 2CAP PER DAY
     Route: 048
  9. CHINESE HERB [Concomitant]
     Route: 048

REACTIONS (5)
  - White blood cell count decreased [Recovered/Resolved]
  - Haemorrhage subcutaneous [Recovered/Resolved]
  - Platelet count decreased [Recovered/Resolved]
  - Injection site reaction [Not Recovered/Not Resolved]
  - Pain [Not Recovered/Not Resolved]
